FAERS Safety Report 18479837 (Version 1)
Quarter: 2020Q4

REPORT INFORMATION
  Report Type: Spontaneous
  Country: DE (occurrence: DE)
  Receive Date: 20201109
  Receipt Date: 20201109
  Transmission Date: 20210114
  Serious: Yes (Death, Other)
  Sender: FDA-Public Use
  Company Number: DE-MICRO LABS LIMITED-ML2020-03308

PATIENT
  Age: 24 Year
  Sex: Male

DRUGS (18)
  1. MXE (METHOXETAMINE) [Suspect]
     Active Substance: METHOXETAMINE
  2. AMPHETAMINE [Suspect]
     Active Substance: AMPHETAMINE
  3. MORPHINE [Suspect]
     Active Substance: MORPHINE
  4. DIHYDROCODEINE [Suspect]
     Active Substance: DIHYDROCODEINE
  5. OXAZEPAM. [Suspect]
     Active Substance: OXAZEPAM
  6. DIPHENHYDRAMINE HYDROCHLORIDE. [Suspect]
     Active Substance: DIPHENHYDRAMINE HYDROCHLORIDE
  7. EDDP (2-ETHYLIDINE-1,5-DIMETHYL-3,3-DIPHENYLPYRROLIDINE PERCHLORATE) [Suspect]
     Active Substance: 2-ETHYLIDENE-1,5-DIMETHYL-3,3-DIPHENYLPYRROLIDINE
  8. ALCOHOL. [Suspect]
     Active Substance: ALCOHOL
  9. PAPAVERINE [Suspect]
     Active Substance: PAPAVERINE
  10. NOSCAPINE [Suspect]
     Active Substance: NOSCAPINE
  11. TETRAZEPAM [Suspect]
     Active Substance: TETRAZEPAM
  12. METHADONE [Suspect]
     Active Substance: METHADONE HYDROCHLORIDE
  13. DIAZEPAM. [Suspect]
     Active Substance: DIAZEPAM
  14. CODEINE [Suspect]
     Active Substance: CODEINE
  15. NORCODEINE. [Suspect]
     Active Substance: NORCODEINE
  16. TEMAZEPAM. [Suspect]
     Active Substance: TEMAZEPAM
  17. NORDAZEPAM [Suspect]
     Active Substance: NORDAZEPAM
  18. THC AND METABOLITES (TETRAHYDROCANNABINOL) [Suspect]
     Active Substance: .DELTA.8-TETRAHYDROCANNABINOL\11-NOR-9-CARBOXY-.DELTA-9-TETRAHYDROCANNABINOL

REACTIONS (2)
  - Toxicity to various agents [Fatal]
  - Drug abuse [Unknown]
